FAERS Safety Report 9266588 (Version 3)
Quarter: 2013Q3

REPORT INFORMATION
  Report Type: Report from Study
  Country: BR (occurrence: BR)
  Receive Date: 20130502
  Receipt Date: 20130728
  Transmission Date: 20140515
  Serious: Yes (Death, Hospitalization, Other)
  Sender: FDA-Public Use
  Company Number: PHHY2013BR043012

PATIENT
  Sex: Male

DRUGS (1)
  1. FORASEQ [Suspect]
     Indication: DYSPNOEA
     Dosage: 1 DF, BID
     Dates: start: 201302

REACTIONS (3)
  - Dyspnoea [Fatal]
  - Arrhythmia [Fatal]
  - Lung neoplasm malignant [Fatal]
